FAERS Safety Report 4740418-0 (Version None)
Quarter: 2005Q3

REPORT INFORMATION
  Report Type: 
  Country: None (occurrence: None)
  Receive Date: 20050729
  Receipt Date: 20050421
  Transmission Date: 20060218
  Serious: Yes (Death)
  Sender: FDA-Public Use
  Company Number: 213976

PATIENT
  Age: 76 Year
  Sex: Female

DRUGS (1)
  1. TNKASE [Suspect]
     Indication: PULMONARY EMBOLISM

REACTIONS (1)
  - PULMONARY HAEMORRHAGE [None]
